FAERS Safety Report 24574683 (Version 1)
Quarter: 2024Q4

REPORT INFORMATION
  Report Type: Spontaneous
  Country: CL (occurrence: CL)
  Receive Date: 20241104
  Receipt Date: 20241104
  Transmission Date: 20250115
  Serious: Yes (Death, Congenital Anomaly, Other)
  Sender: Haleon PLC
  Company Number: CL-HALEON-2205964

PATIENT
  Sex: Female

DRUGS (2)
  1. IBUPROFEN [Suspect]
     Active Substance: IBUPROFEN
     Indication: Product used for unknown indication
     Route: 064
  2. PROPRANOLOL [Suspect]
     Active Substance: PROPRANOLOL HYDROCHLORIDE
     Indication: Product used for unknown indication
     Route: 064

REACTIONS (17)
  - Pulmonary hypertension [Fatal]
  - Foetal exposure during pregnancy [Unknown]
  - Tricuspid valve incompetence [Fatal]
  - Atrial septal defect [Fatal]
  - Patent ductus arteriosus [Fatal]
  - Right ventricular dysfunction [Fatal]
  - Right ventricular hypertrophy [Fatal]
  - Pleural effusion [Fatal]
  - Congenital chylothorax [Fatal]
  - Generalised oedema [Fatal]
  - Left ventricular dysfunction [Fatal]
  - Pleural disorder [Fatal]
  - Heart disease congenital [Fatal]
  - Premature baby [Fatal]
  - Large for dates baby [Fatal]
  - Foetal cardiac disorder [Fatal]
  - Polyhydramnios [Fatal]
